FAERS Safety Report 7319189-X (Version None)
Quarter: 2011Q1

REPORT INFORMATION
  Report Type: 
  Country: None (occurrence: None)
  Receive Date: 20110223
  Receipt Date: 20110223
  Transmission Date: 20110831
  Serious: Yes (Other)
  Sender: FDA-Public Use
  Company Number: None

PATIENT
  Sex: Male
  Weight: 84.8226 kg

DRUGS (1)
  1. TRANSDERM SCOP [Suspect]
     Indication: MOTION SICKNESS
     Dosage: 1.5MG EVERY 3 DAYS TRANSDERMAL
     Route: 062
     Dates: start: 20110212, end: 20110219

REACTIONS (4)
  - NAUSEA [None]
  - FATIGUE [None]
  - VERTIGO [None]
  - HEADACHE [None]
